FAERS Safety Report 5086189-2 (Version None)
Quarter: 2006Q3

REPORT INFORMATION
  Report Type: 
  Country: None (occurrence: None)
  Receive Date: 20060818
  Receipt Date: 20060809
  Transmission Date: 20061208
  Serious: Yes (Other)
  Sender: FDA-Public Use
  Company Number: 2006-07-0009

PATIENT
  Age: 67 Year
  Sex: Female

DRUGS (3)
  1. TEMODAL [Suspect]
     Indication: GLIOBLASTOMA
     Dosage: ORAL
     Route: 048
     Dates: start: 20060410, end: 20060503
  2. FORTECORTIN [Concomitant]
  3. RADIATION THERAPY [Concomitant]

REACTIONS (5)
  - DRY MOUTH [None]
  - FATIGUE [None]
  - JAUNDICE [None]
  - OEDEMA PERIPHERAL [None]
  - TRANSAMINASES INCREASED [None]
